FAERS Safety Report 9350038 (Version 1)
Quarter: 2013Q2

REPORT INFORMATION
  Report Type: Spontaneous
  Country: US (occurrence: US)
  Receive Date: 20130615
  Receipt Date: 20130615
  Transmission Date: 20140414
  Serious: Yes (Hospitalization)
  Sender: FDA-Public Use
  Company Number: US-B.I. PHARMACEUTICALS,INC./RIDGEFIELD-2013-BI-16625BP

PATIENT
  Age: 73 Year
  Sex: Female
  Weight: 73 kg

DRUGS (5)
  1. COMBIVENT [Suspect]
     Indication: CHRONIC OBSTRUCTIVE PULMONARY DISEASE
     Dosage: STRENGTH: 18 MCG / 103 MCG; DAILY DOSE: 72 MCG/ 412 MCG
     Route: 055
     Dates: start: 2006
  2. FLOVENT [Concomitant]
     Route: 055
  3. LEVOTHYROXINE [Concomitant]
     Indication: THYROID DISORDER
     Dosage: 0.05 MG
     Route: 048
  4. EXFORGE [Concomitant]
     Indication: HYPERTENSION
     Dosage: STRENGTH: 10/320 MG; DAILY DOSE: 10/320 MG
     Route: 048
  5. GUANFACINE [Concomitant]
     Indication: HYPERTENSION
     Dosage: 0.5 MG
     Route: 048

REACTIONS (1)
  - Chest pain [Recovered/Resolved]
